FAERS Safety Report 9060706 (Version 1)
Quarter: 2013Q1

REPORT INFORMATION
  Report Type: Report from Study
  Country: CA (occurrence: CA)
  Receive Date: 20130204
  Receipt Date: 20130204
  Transmission Date: 20140127
  Serious: Yes (Death)
  Sender: FDA-Public Use
  Company Number: CA-ROCHE-1157121

PATIENT
  Sex: Male

DRUGS (4)
  1. ZELBORAF [Suspect]
     Indication: METASTATIC MALIGNANT MELANOMA
     Route: 048
     Dates: start: 201209
  2. ZELBORAF [Suspect]
     Route: 048
     Dates: start: 2012
  3. CLOBAZAM [Concomitant]
  4. CARBAMAZEPINE [Concomitant]
     Indication: CONVULSION

REACTIONS (2)
  - Rash [Unknown]
  - Death [Fatal]
